FAERS Safety Report 14770403 (Version 1)
Quarter: 2018Q2

REPORT INFORMATION
  Report Type: Spontaneous
  Country: JP (occurrence: JP)
  Receive Date: 20180417
  Receipt Date: 20180417
  Transmission Date: 20180711
  Serious: Yes (Other)
  Sender: FDA-Public Use
  Company Number: JP-PFIZER INC-2018152846

PATIENT

DRUGS (1)
  1. METHOTREXATE SODIUM. [Suspect]
     Active Substance: METHOTREXATE SODIUM
     Route: 048

REACTIONS (3)
  - Feeling abnormal [Unknown]
  - Transient ischaemic attack [Unknown]
  - Monoplegia [Unknown]

NARRATIVE: CASE EVENT DATE: 201802
